FAERS Safety Report 9398160 (Version 1)
Quarter: 2013Q3

REPORT INFORMATION
  Report Type: Spontaneous
  Country: US (occurrence: US)
  Receive Date: 20130712
  Receipt Date: 20130712
  Transmission Date: 20140515
  Serious: Yes (Other)
  Sender: FDA-Public Use
  Company Number: US-AMGEN-USASP2013048123

PATIENT
  Age: 69 Year
  Sex: Female

DRUGS (7)
  1. PROLIA [Suspect]
     Indication: OSTEOPENIA
     Dosage: UNK
     Dates: start: 201301
  2. SYNTHROID [Concomitant]
  3. NEURONTIN [Concomitant]
  4. TYLENOL                            /00020001/ [Concomitant]
  5. CALCIUM [Concomitant]
  6. VITAMIN D                          /00107901/ [Concomitant]
  7. MULTIVITAMIN                       /00097801/ [Concomitant]

REACTIONS (6)
  - Pelvic fracture [Unknown]
  - Pain [Not Recovered/Not Resolved]
  - Back disorder [Unknown]
  - Groin pain [Unknown]
  - Gait disturbance [Unknown]
  - Weight bearing difficulty [Unknown]
